FAERS Safety Report 20580904 (Version 12)
Quarter: 2022Q3

REPORT INFORMATION
  Report Type: Report from Study
  Country: US (occurrence: US)
  Receive Date: 20220311
  Receipt Date: 20220829
  Transmission Date: 20221027
  Serious: Yes (Death, Hospitalization, Other)
  Sender: FDA-Public Use
  Company Number: US-INSMED, INC.-2021-10490-US

PATIENT
  Age: 74 Year
  Sex: Male

DRUGS (15)
  1. ARIKAYCE [Suspect]
     Active Substance: AMIKACIN
     Indication: Mycobacterium avium complex infection
     Dosage: 590 MILLIGRAM, QD
     Route: 055
     Dates: start: 20211217, end: 202202
  2. ARIKAYCE [Suspect]
     Active Substance: AMIKACIN
     Indication: Sarcoidosis
     Dosage: 590 MILLIGRAM, QD
     Route: 055
     Dates: start: 20220326, end: 20220330
  3. BACTRIM [Suspect]
     Active Substance: SULFAMETHOXAZOLE\TRIMETHOPRIM
     Indication: Product used for unknown indication
     Dosage: UNK
     Route: 065
  4. NUZYRA [Suspect]
     Active Substance: OMADACYCLINE
     Indication: Mycobacterium avium complex infection
     Dosage: 300 MILLIGRAM, QD
     Route: 048
     Dates: start: 20210801
  5. NUZYRA [Suspect]
     Active Substance: OMADACYCLINE
     Dosage: 300 MILLIGRAM, QD
     Route: 048
     Dates: start: 20220318, end: 202207
  6. ZETIA [Concomitant]
     Active Substance: EZETIMIBE
     Indication: Product used for unknown indication
     Dosage: UNK
     Route: 065
  7. ROSUVASTATIN [Concomitant]
     Active Substance: ROSUVASTATIN
     Indication: Product used for unknown indication
     Dosage: UNK
     Route: 065
  8. LOSARTAN [Concomitant]
     Active Substance: LOSARTAN
     Indication: Product used for unknown indication
     Dosage: UNK
     Route: 065
  9. CO Q 10 [UBIDECARENONE] [Concomitant]
     Indication: Product used for unknown indication
     Dosage: UNK
     Route: 065
  10. PREDNISONE [Concomitant]
     Active Substance: PREDNISONE
     Indication: Product use in unapproved indication
     Dosage: UNK
     Route: 065
  11. METHOTREXATE [Concomitant]
     Active Substance: METHOTREXATE
     Indication: Product used for unknown indication
     Dosage: UNK
     Route: 065
  12. DULERA [Concomitant]
     Active Substance: FORMOTEROL FUMARATE DIHYDRATE\MOMETASONE FUROATE
     Indication: Product used for unknown indication
     Dosage: UNK
     Route: 055
  13. SPIRIVA [Concomitant]
     Active Substance: TIOTROPIUM BROMIDE MONOHYDRATE
     Indication: Product used for unknown indication
     Dosage: UNK
     Route: 055
  14. ALBUTEROL [Concomitant]
     Active Substance: ALBUTEROL
     Indication: Product used for unknown indication
     Dosage: UNK
     Route: 065
  15. NUCALA [Concomitant]
     Active Substance: MEPOLIZUMAB
     Indication: Product used for unknown indication
     Dosage: UNK
     Route: 065

REACTIONS (34)
  - Lung disorder [Fatal]
  - Cardiac disorder [Fatal]
  - Hospitalisation [Unknown]
  - Oxygen saturation decreased [Not Recovered/Not Resolved]
  - Pulmonary function test decreased [Unknown]
  - Myocardial injury [Not Recovered/Not Resolved]
  - Ejection fraction decreased [Unknown]
  - Shock [Not Recovered/Not Resolved]
  - Intracardiac pressure increased [Not Recovered/Not Resolved]
  - Aspiration [Unknown]
  - Vascular device infection [Unknown]
  - Medical device site calcification [Unknown]
  - Oesophageal dilatation [Unknown]
  - Pulmonary congestion [Unknown]
  - Pulmonary oedema [Unknown]
  - Pericardial effusion [Unknown]
  - Respiratory tract congestion [Not Recovered/Not Resolved]
  - Gait disturbance [Recovered/Resolved]
  - Dysphagia [Unknown]
  - Sputum retention [Recovered/Resolved]
  - Infection [Unknown]
  - Renal injury [Unknown]
  - Sputum increased [Unknown]
  - Dysgeusia [Not Recovered/Not Resolved]
  - Throat irritation [Unknown]
  - Productive cough [Unknown]
  - Oral candidiasis [Not Recovered/Not Resolved]
  - Vomiting [Unknown]
  - Cough [Recovering/Resolving]
  - Hypoacusis [Unknown]
  - Dysphonia [Recovered/Resolved]
  - Oropharyngeal pain [Unknown]
  - Adverse drug reaction [Unknown]
  - Therapy interrupted [Unknown]

NARRATIVE: CASE EVENT DATE: 20211218
